FAERS Safety Report 23775944 (Version 2)
Quarter: 2024Q2

REPORT INFORMATION
  Report Type: Spontaneous
  Country: US (occurrence: None)
  Receive Date: 20240424
  Receipt Date: 20240426
  Transmission Date: 20240716
  Serious: Yes (Other)
  Sender: FDA-Public Use
  Company Number: US-ROCHE-3545418

PATIENT
  Age: 60 Year
  Sex: Female
  Weight: 110.78 kg

DRUGS (16)
  1. OCREVUS [Suspect]
     Active Substance: OCRELIZUMAB
     Indication: Relapsing-remitting multiple sclerosis
     Dosage: SECOND INFUSION RECEIVED ON 10/APR/2024
     Route: 042
     Dates: start: 20240327
  2. PERCOCET [Concomitant]
     Active Substance: ACETAMINOPHEN\OXYCODONE HYDROCHLORIDE
     Indication: Pain
     Route: 048
  3. BACLOFEN [Concomitant]
     Active Substance: BACLOFEN
     Indication: Muscle spasms
     Route: 048
  4. TRAZODONE [Concomitant]
     Active Substance: TRAZODONE HYDROCHLORIDE
     Indication: Insomnia
     Route: 048
  5. GABAPENTIN [Concomitant]
     Active Substance: GABAPENTIN
     Indication: Neuralgia
     Route: 048
  6. DOXEPIN [Concomitant]
     Active Substance: DOXEPIN
     Indication: Insomnia
     Route: 048
  7. PRAMIPEXOLE [Concomitant]
     Active Substance: PRAMIPEXOLE\PRAMIPEXOLE DIHYDROCHLORIDE
     Indication: Restless legs syndrome
     Route: 048
  8. ZALEPLON [Concomitant]
     Active Substance: ZALEPLON
     Indication: Insomnia
     Route: 048
  9. ALPRAZOLAM [Concomitant]
     Active Substance: ALPRAZOLAM
     Route: 048
  10. AMLODIPINE [Concomitant]
     Active Substance: AMLODIPINE BESYLATE
     Indication: Hypertension
     Route: 048
  11. HYDROCHLOROTHIAZIDE [Concomitant]
     Active Substance: HYDROCHLOROTHIAZIDE
     Indication: Hypertension
     Route: 048
  12. LOSARTAN [Concomitant]
     Active Substance: LOSARTAN
     Indication: Hypertension
     Route: 048
  13. METOPROLOL [Concomitant]
     Active Substance: METOPROLOL
     Indication: Hypertension
     Route: 048
  14. FUROSEMIDE [Concomitant]
     Active Substance: FUROSEMIDE
     Indication: Joint swelling
     Route: 048
  15. FUROSEMIDE [Concomitant]
     Active Substance: FUROSEMIDE
     Indication: Peripheral swelling
  16. OXYGEN [Concomitant]
     Active Substance: OXYGEN
     Dates: start: 20240410

REACTIONS (5)
  - Headache [Recovered/Resolved]
  - Fatigue [Unknown]
  - Dizziness [Unknown]
  - Hyperhidrosis [Unknown]
  - Cardiac flutter [Unknown]

NARRATIVE: CASE EVENT DATE: 20240327
